FAERS Safety Report 11252236 (Version 1)
Quarter: 2015Q3

REPORT INFORMATION
  Report Type: Spontaneous
  Country: US (occurrence: US)
  Receive Date: 20150708
  Receipt Date: 20150708
  Transmission Date: 20151125
  Serious: Yes (Other)
  Sender: FDA-Public Use
  Company Number: US-ELI_LILLY_AND_COMPANY-US201304001591

PATIENT
  Sex: Female

DRUGS (1)
  1. GEMZAR [Suspect]
     Active Substance: GEMCITABINE HYDROCHLORIDE
     Indication: CERVIX CARCINOMA
     Dosage: 2 G, DAYS 1, 8, AND 15 FOR 4 WEEKS
     Route: 042
     Dates: start: 20130124, end: 20130214

REACTIONS (1)
  - Malignant neoplasm progression [Recovered/Resolved]
